FAERS Safety Report 4398542-0 (Version None)
Quarter: 2004Q3

REPORT INFORMATION
  Report Type: 
  Country: None (occurrence: None)
  Receive Date: 20040715
  Receipt Date: 20040707
  Transmission Date: 20050211
  Serious: Yes (Hospitalization)
  Sender: FDA-Public Use
  Company Number: ES-GLAXOSMITHKLINE-B0338490A

PATIENT
  Age: 40 Year
  Sex: Male
  Weight: 82 kg

DRUGS (5)
  1. FOSAMPRENAVIR [Suspect]
     Indication: HIV INFECTION
     Dosage: 700MG TWICE PER DAY
     Route: 048
     Dates: start: 20040607, end: 20040706
  2. RITONAVIR [Suspect]
     Indication: HIV INFECTION
     Dosage: 100MG TWICE PER DAY
     Route: 048
     Dates: start: 20040607, end: 20040706
  3. METFORMIN HCL [Concomitant]
     Indication: DIABETES MELLITUS
     Dosage: 850MG TWICE PER DAY
     Route: 048
     Dates: start: 20030218, end: 20040706
  4. GEMFIBROZIL [Concomitant]
     Indication: DYSLIPIDAEMIA
     Dosage: 900MG PER DAY
     Route: 048
     Dates: start: 20030218, end: 20040706
  5. INTERMEDIATE/LONG-ACTING INSULIN [Concomitant]
     Indication: DIABETES MELLITUS
     Route: 058
     Dates: start: 20011009

REACTIONS (6)
  - ABDOMINAL PAIN [None]
  - DIARRHOEA [None]
  - DYSPNOEA [None]
  - GASTROINTESTINAL TOXICITY [None]
  - ILEUS PARALYTIC [None]
  - MALAISE [None]
